FAERS Safety Report 24726584 (Version 2)
Quarter: 2024Q4

REPORT INFORMATION
  Report Type: Spontaneous
  Country: US (occurrence: US)
  Receive Date: 20241212
  Receipt Date: 20241219
  Transmission Date: 20250115
  Serious: No
  Sender: ROCHE
  Company Number: US-ROCHE-10000152115

PATIENT

DRUGS (1)
  1. RITUXIMAB [Suspect]
     Active Substance: RITUXIMAB
     Indication: Neuromyelitis optica spectrum disorder
     Route: 065

REACTIONS (4)
  - Interstitial lung disease [Recovering/Resolving]
  - Hypogammaglobulinaemia [Unknown]
  - Blood immunoglobulin G decreased [Recovering/Resolving]
  - Blood immunoglobulin M decreased [Recovering/Resolving]
